FAERS Safety Report 9937414 (Version 4)
Quarter: 2015Q1

REPORT INFORMATION
  Report Type: Spontaneous
  Country: DE (occurrence: DE)
  Receive Date: 20140303
  Receipt Date: 20150206
  Transmission Date: 20150721
  Serious: Yes (Other)
  Sender: FDA-Public Use
  Company Number: DE-ROCHE-1342009

PATIENT
  Age: 46 Year
  Sex: Female
  Weight: 55 kg

DRUGS (2)
  1. ZELBORAF [Suspect]
     Active Substance: VEMURAFENIB
     Dosage: INTERVAL SCHEME: 4 WEEKS THERAPY THEN 2 WEEKS BREAK
     Route: 048
     Dates: start: 20130418
  2. ZELBORAF [Suspect]
     Active Substance: VEMURAFENIB
     Indication: MALIGNANT MELANOMA
     Route: 048
     Dates: start: 20130326, end: 20130408

REACTIONS (3)
  - Rash follicular [Recovered/Resolved]
  - Photosensitivity reaction [Recovered/Resolved]
  - Post inflammatory pigmentation change [Unknown]

NARRATIVE: CASE EVENT DATE: 20130408
